FAERS Safety Report 9000001 (Version 2)
Quarter: 2013Q1

REPORT INFORMATION
  Report Type: Spontaneous
  Country: US (occurrence: US)
  Receive Date: 20130102
  Receipt Date: 20130108
  Transmission Date: 20140127
  Serious: Yes (Other)
  Sender: FDA-Public Use
  Company Number: US-PFIZER INC-2012332695

PATIENT
  Age: 79 Year
  Sex: Female
  Weight: 79.37 kg

DRUGS (3)
  1. PROTONIX [Suspect]
     Indication: GASTROOESOPHAGEAL REFLUX DISEASE
     Dosage: 40 MG, 3X/DAY
     Route: 048
  2. PROTONIX [Suspect]
     Dosage: 40 MG, 2X/DAY
     Route: 048
  3. POTASSIUM [Concomitant]
     Dosage: UNK

REACTIONS (1)
  - Barrett^s oesophagus [Unknown]
